FAERS Safety Report 8172464-1 (Version None)
Quarter: 2012Q1

REPORT INFORMATION
  Report Type: 
  Country: None (occurrence: None)
  Receive Date: 20120227
  Receipt Date: 20120227
  Transmission Date: 20120608
  Serious: No
  Sender: FDA-Public Use
  Company Number: None

PATIENT
  Sex: Male
  Weight: 14.9 kg

DRUGS (5)
  1. CYTARABINE [Suspect]
     Dosage: 50 MG
  2. DEXAMETHASONE [Suspect]
     Dosage: 75.6 MG
  3. VINCRISTINE SULFATE [Suspect]
     Dosage: 2.76 MG
  4. METHOTREXATE [Suspect]
     Dosage: 10 MG
  5. PEG-L- ASPARAGINASE (PEGASPARGASE, ONCOSPAR) [Suspect]
     Dosage: 1525 IU

REACTIONS (10)
  - DIARRHOEA [None]
  - RESPIRATORY ARREST [None]
  - VOMITING [None]
  - PANCYTOPENIA [None]
  - PALLOR [None]
  - FATIGUE [None]
  - EAR INFECTION [None]
  - CONTUSION [None]
  - NIGHT SWEATS [None]
  - PAIN IN EXTREMITY [None]
